FAERS Safety Report 7608483-0 (Version None)
Quarter: 2011Q3

REPORT INFORMATION
  Report Type: 
  Country: None (occurrence: None)
  Receive Date: 20110714
  Receipt Date: 20110713
  Transmission Date: 20111222
  Serious: Yes (Other)
  Sender: FDA-Public Use
  Company Number: FR-PFIZER INC-2011157911

PATIENT
  Age: 52 Year
  Sex: Male

DRUGS (2)
  1. LYRICA [Suspect]
     Dosage: DOSE PROGRESSIVELY INCREASED
  2. LYRICA [Suspect]
     Dosage: 300 MG, 2X/DAY

REACTIONS (2)
  - OEDEMA PERIPHERAL [None]
  - HYPERGLYCAEMIA [None]
